FAERS Safety Report 7113161-0 (Version None)
Quarter: 2010Q4

REPORT INFORMATION
  Report Type: 
  Country: None (occurrence: None)
  Receive Date: 20101119
  Receipt Date: 20101110
  Transmission Date: 20110411
  Serious: Yes (Hospitalization)
  Sender: FDA-Public Use
  Company Number: DE-TEVA-255002GER

PATIENT
  Sex: Female
  Weight: 70 kg

DRUGS (4)
  1. HYDROCHLOROTHIAZIDE [Suspect]
     Indication: HYPERTENSION
     Route: 048
  2. ALISKIREN (RASILEZ) [Suspect]
     Indication: HYPERTENSION
     Route: 048
     Dates: start: 20090424
  3. EXFORGE [Suspect]
     Indication: HYPERTENSION
     Dosage: 160/ 5MG PER DAY
     Route: 048
     Dates: start: 20080101
  4. HALOPERIDOL (HALOPERIDOL RATIOPHARM) [Concomitant]
     Route: 048
     Dates: start: 20020101

REACTIONS (1)
  - CARDIOVASCULAR DISORDER [None]
